FAERS Safety Report 8161149-3 (Version None)
Quarter: 2012Q1

REPORT INFORMATION
  Report Type: 
  Country: None (occurrence: None)
  Receive Date: 20120224
  Receipt Date: 20120221
  Transmission Date: 20120608
  Serious: No
  Sender: FDA-Public Use
  Company Number: US-PFIZER INC-2012001466

PATIENT
  Sex: Female
  Weight: 56.689 kg

DRUGS (1)
  1. DETROL LA [Suspect]
     Indication: POLLAKIURIA
     Dosage: 4 MG, 1X/DAY
     Route: 048
     Dates: start: 20111227

REACTIONS (2)
  - DRY MOUTH [None]
  - MUSCULAR WEAKNESS [None]
